FAERS Safety Report 9235121 (Version 5)
Quarter: 2013Q4

REPORT INFORMATION
  Report Type: Spontaneous
  Country: GB (occurrence: GB)
  Receive Date: 20130416
  Receipt Date: 20131010
  Transmission Date: 20140711
  Serious: Yes (Death, Hospitalization)
  Sender: FDA-Public Use
  Company Number: GB-TEVA-398395USA

PATIENT
  Sex: Male

DRUGS (4)
  1. LEVACT [Suspect]
     Indication: CHRONIC LYMPHOCYTIC LEUKAEMIA
     Dosage: UID/QD
     Dates: start: 20130114, end: 20130115
  2. LEVACT [Suspect]
     Dosage: UNKNOWN/D
     Dates: start: 20130211, end: 20130212
  3. RITUXIMAB [Suspect]
     Indication: PRODUCT USED FOR UNKNOWN INDICATION
     Dosage: UNKNOWN/D
     Dates: start: 20130211
  4. RITUXIMAB [Suspect]
     Dosage: UNKNOWN/D
     Dates: start: 20130212

REACTIONS (4)
  - Hepatic failure [Fatal]
  - Herpes simplex [Fatal]
  - Sepsis [Fatal]
  - Rash [Recovered/Resolved]
